FAERS Safety Report 9688634 (Version 3)
Quarter: 2013Q4

REPORT INFORMATION
  Report Type: Report from Study
  Country: US (occurrence: US)
  Receive Date: 20131114
  Receipt Date: 20131227
  Transmission Date: 20140711
  Serious: Yes (Other)
  Sender: FDA-Public Use
  Company Number: US-DENDREON CORPORATION-2013PROUSA03282

PATIENT
  Age: 75 Year
  Sex: Male
  Weight: 86.17 kg

DRUGS (10)
  1. SIPULEUCEL-T [Suspect]
     Indication: PROSTATE CANCER METASTATIC
     Dosage: 250 ML, SINGLE
     Route: 042
     Dates: start: 20131025, end: 20131025
  2. SIPULEUCEL-T [Suspect]
     Dosage: 250 ML, SINGLE
     Route: 042
     Dates: start: 20131206, end: 20131206
  3. SIPULEUCEL-T [Suspect]
     Dosage: 250 ML, SINGLE
     Route: 042
     Dates: start: 20131220, end: 20131220
  4. LISINOPRIL [Concomitant]
     Indication: HYPERTENSION
     Dosage: 10 MG, BID
     Route: 048
  5. SIMVASTIN [Concomitant]
     Indication: BLOOD CHOLESTEROL INCREASED
     Dosage: 20 MG, QD
     Route: 048
  6. TOPROL [Concomitant]
     Indication: HYPERTENSION
     Dosage: 25 MG, QD
     Route: 048
  7. ASPIRIN [Concomitant]
     Indication: CORONARY ARTERY DISEASE
     Dosage: 81 MG, QD
     Route: 048
  8. MOMETASONE [Concomitant]
     Dosage: 50 MCG, PRN IN EACH NOSTRIL
     Route: 045
  9. CETIRIZINE [Concomitant]
     Dosage: 10 MG, PRN
     Route: 048
  10. MULTIVITAMINS [Concomitant]
     Dosage: 1 DF, QD

REACTIONS (1)
  - Pulmonary embolism [Recovered/Resolved]
